FAERS Safety Report 9457810 (Version 1)
Quarter: 2013Q3

REPORT INFORMATION
  Report Type: Spontaneous
  Country: JP (occurrence: JP)
  Receive Date: 20130814
  Receipt Date: 20130814
  Transmission Date: 20140515
  Serious: Yes (Other)
  Sender: FDA-Public Use
  Company Number: PHHY2013JP087497

PATIENT
  Age: 47 Year
  Sex: Male

DRUGS (1)
  1. DIOVAN [Suspect]
     Dosage: UNK UKN, UNK
     Route: 048

REACTIONS (3)
  - Hyperthermia [Unknown]
  - Pyrexia [Unknown]
  - Blister [Unknown]
